FAERS Safety Report 5441632-1 (Version None)
Quarter: 2007Q3

REPORT INFORMATION
  Report Type: 
  Country: None (occurrence: None)
  Receive Date: 20070904
  Receipt Date: 20070824
  Transmission Date: 20080115
  Serious: Yes (Other)
  Sender: FDA-Public Use
  Company Number: JP-SANOFI-SYNTHELABO-A01200709266

PATIENT
  Age: 70 Year
  Sex: Female

DRUGS (33)
  1. DOGMATYL [Suspect]
     Indication: DRUG USE FOR UNKNOWN INDICATION
     Dosage: UNK
     Route: 065
  2. ZOLPIDEM [Suspect]
     Indication: DRUG USE FOR UNKNOWN INDICATION
     Dosage: UNK
     Route: 065
  3. NEUQUINON [Suspect]
     Dosage: UNK
     Route: 065
  4. METHYCOBAL [Suspect]
     Dosage: UNK
     Route: 065
  5. RABEPRAZOLE SODIUM [Suspect]
     Dosage: UNK
     Route: 065
  6. MEDICON [Suspect]
     Dosage: UNK
     Route: 065
  7. LANSOPRAZOLE [Suspect]
     Dosage: UNK
     Route: 065
  8. MUCOSTA [Suspect]
     Dosage: UNK
     Route: 065
  9. PEPCID [Suspect]
     Dosage: UNK
     Route: 065
  10. ARTIST [Suspect]
     Dosage: UNK
     Route: 065
  11. LEVOFLOXACIN [Suspect]
     Dosage: UNK
     Route: 065
  12. CYLOCIDE [Suspect]
     Dosage: UNK
     Route: 065
  13. METHOTREXATE [Suspect]
     Dosage: UNK
     Route: 065
  14. CHLOROMYCETIN [Suspect]
     Dosage: UNK
     Route: 065
  15. POLYMYXIN B SULFATE [Suspect]
     Dosage: UNK
     Route: 065
  16. PENTCILLIN [Suspect]
     Dosage: UNK
     Route: 065
  17. MINOCYCLINE HCL [Suspect]
     Dosage: UNK
     Route: 065
  18. ZYVOX [Suspect]
     Dosage: UNK
     Route: 065
  19. DIFLUCAN [Suspect]
     Dosage: UNK
     Route: 065
  20. VANCOMYCIN [Suspect]
     Dosage: UNK
     Route: 065
  21. FUNGIZONE [Suspect]
     Dosage: UNK
     Route: 065
  22. AMBISOME [Suspect]
     Dosage: UNK
     Route: 065
  23. ACLACINON [Suspect]
     Dosage: UNK
     Route: 065
  24. CEFZON [Suspect]
     Dosage: UNK
     Route: 065
  25. TARGOCID [Suspect]
     Dosage: UNK
     Route: 065
  26. ITRACONAZOLE [Suspect]
     Dosage: UNK
     Route: 065
  27. TAZOCIN [Suspect]
     Dosage: UNK
     Route: 065
  28. NOVANTRONE [Suspect]
     Dosage: UNK
     Route: 065
  29. SULPERAZON [Suspect]
     Dosage: UNK
     Route: 065
  30. VFEND [Suspect]
     Dosage: UNK
     Route: 065
  31. OHTSUKA CEZ-MC [Suspect]
     Dosage: UNK
     Route: 065
  32. AUGMENTIN '125' [Suspect]
     Dosage: UNK
     Route: 065
  33. FUNGUARD [Suspect]
     Dosage: UNK
     Route: 065

REACTIONS (1)
  - LEUKOENCEPHALOPATHY [None]
